FAERS Safety Report 20951011 (Version 1)
Quarter: 2022Q2

REPORT INFORMATION
  Report Type: Spontaneous
  Country: PK (occurrence: PK)
  Receive Date: 20220613
  Receipt Date: 20220613
  Transmission Date: 20220721
  Serious: Yes (Life-Threatening, Hospitalization, Other)
  Sender: FDA-Public Use
  Company Number: PK-LOTUS-2022-LOTUS-048999

PATIENT
  Age: 19 Year
  Sex: Female

DRUGS (1)
  1. METHOTREXATE [Suspect]
     Active Substance: METHOTREXATE
     Indication: Acute leukaemia
     Route: 037

REACTIONS (1)
  - Leukoencephalopathy [Recovered/Resolved]
